FAERS Safety Report 9944022 (Version 1)
Quarter: 2014Q1

REPORT INFORMATION
  Report Type: Spontaneous
  Country: DK (occurrence: FR)
  Receive Date: 20140303
  Receipt Date: 20140303
  Transmission Date: 20141002
  Serious: Yes (Hospitalization)
  Sender: FDA-Public Use
  Company Number: FR-FRI-1000054765

PATIENT
  Age: 52 Year
  Sex: Female

DRUGS (4)
  1. ESCITALOPRAM [Suspect]
     Dosage: 1 DF
     Route: 048
     Dates: start: 20131218, end: 20140108
  2. PRAZEPAM BIOGARAN [Suspect]
     Dosage: 1 TO 3 TABLETS DAILY
     Route: 048
     Dates: start: 20131218, end: 20140108
  3. LEVOTHYROX [Concomitant]
     Dates: start: 20130729
  4. TRAVATAN [Concomitant]

REACTIONS (2)
  - Headache [Recovered/Resolved]
  - Photopsia [Recovered/Resolved]
